FAERS Safety Report 6466336-8 (Version None)
Quarter: 2009Q4

REPORT INFORMATION
  Report Type: 
  Country: None (occurrence: None)
  Receive Date: 20091201
  Receipt Date: 20091201
  Transmission Date: 20100525
  Serious: Yes (Other)
  Sender: FDA-Public Use
  Company Number: None

PATIENT
  Age: 40 Year
  Sex: Male

DRUGS (3)
  1. RISPERIDONE [Suspect]
     Indication: AFFECTIVE DISORDER
     Dosage: 4 MG AT BEDTIME PO
     Route: 048
     Dates: start: 20090814, end: 20090908
  2. RISPERIDONE [Suspect]
     Indication: PSYCHOTIC DISORDER
     Dosage: 4 MG AT BEDTIME PO
     Route: 048
     Dates: start: 20090814, end: 20090908
  3. ABILIFY [Suspect]
     Indication: PSYCHOTIC DISORDER
     Dosage: 30 MG IN THE MORNING PO
     Route: 048
     Dates: start: 20090821, end: 20090918

REACTIONS (5)
  - ANAEMIA [None]
  - DYSKINESIA [None]
  - HYPERTENSION [None]
  - MOVEMENT DISORDER [None]
  - PRIAPISM [None]
